FAERS Safety Report 6146727-5 (Version None)
Quarter: 2009Q2

REPORT INFORMATION
  Report Type: 
  Country: None (occurrence: None)
  Receive Date: 20090407
  Receipt Date: 20090326
  Transmission Date: 20091009
  Serious: Yes (Hospitalization, Other)
  Sender: FDA-Public Use
  Company Number: FR-ELI_LILLY_AND_COMPANY-FR200807001809

PATIENT
  Sex: Female
  Weight: 70 kg

DRUGS (3)
  1. FORTEO [Suspect]
     Indication: OSTEOPOROSIS
     Dosage: 20 UG, DAILY (1/D)
     Route: 058
     Dates: start: 20070501, end: 20080601
  2. PERINDOPRIL ERBUMINE [Concomitant]
     Dosage: 4 MG, UNKNOWN
     Route: 048
  3. DILTIAZEM [Concomitant]
     Dosage: 200 MG, UNKNOWN
     Route: 048

REACTIONS (3)
  - HOSPITALISATION [None]
  - MULTIPLE MYELOMA [None]
  - RENAL FAILURE [None]
